FAERS Safety Report 10463068 (Version 1)
Quarter: 2014Q3

REPORT INFORMATION
  Report Type: Spontaneous
  Country: DE (occurrence: DE)
  Receive Date: 20140919
  Receipt Date: 20140919
  Transmission Date: 20150326
  Serious: Yes (Other)
  Sender: FDA-Public Use
  Company Number: DE-PFIZER INC-2014256664

PATIENT
  Age: 75 Year
  Sex: Female

DRUGS (1)
  1. SORTIS [Suspect]
     Active Substance: ATORVASTATIN
     Dosage: 40 MG, UNK

REACTIONS (4)
  - Creatinine renal clearance decreased [Unknown]
  - Nausea [Unknown]
  - Tinnitus [Unknown]
  - Dizziness [Unknown]
